FAERS Safety Report 5838870-2 (Version None)
Quarter: 2008Q3

REPORT INFORMATION
  Report Type: 
  Country: None (occurrence: None)
  Receive Date: 20080804
  Receipt Date: 20080319
  Transmission Date: 20090109
  Serious: Yes (Other)
  Sender: FDA-Public Use
  Company Number: DSU-2008-00409

PATIENT
  Age: 49 Year
  Sex: Male
  Weight: 91.173 kg

DRUGS (1)
  1. BENICAR HCT [Suspect]
     Indication: HYPERTENSION
     Dosage: 20/12.5 MG (QD),PER ORAL
     Route: 048
     Dates: start: 20080211, end: 20080318

REACTIONS (1)
  - LIVER FUNCTION TEST ABNORMAL [None]
